FAERS Safety Report 5476738-4 (Version None)
Quarter: 2007Q4

REPORT INFORMATION
  Report Type: 
  Country: None (occurrence: None)
  Receive Date: 20071004
  Receipt Date: 20070924
  Transmission Date: 20080405
  Serious: Yes (Other)
  Sender: FDA-Public Use
  Company Number: DE-JNJFOC-20070904856

PATIENT
  Age: 41 Year
  Sex: Female

DRUGS (1)
  1. REMICADE [Suspect]
     Indication: POLYARTERITIS NODOSA
     Dosage: 2 INFUSIONS
     Route: 042

REACTIONS (1)
  - CEREBRAL HAEMORRHAGE [None]
